FAERS Safety Report 7206111-X (Version None)
Quarter: 2010Q4

REPORT INFORMATION
  Report Type: 
  Country: None (occurrence: None)
  Receive Date: 20101228
  Receipt Date: 20101228
  Transmission Date: 20110411
  Serious: Yes (Other)
  Sender: FDA-Public Use
  Company Number: None

PATIENT
  Sex: Female
  Weight: 120.9 kg

DRUGS (4)
  1. MIRENA [Suspect]
     Indication: MENSTRUATION IRREGULAR
     Dosage: T-SHAPED IUD ONCE EVERY 5 YEARS INSERTED INTO CERVIX
     Dates: start: 20081210
  2. MIRENA [Suspect]
     Indication: PREGNANCY
     Dosage: T-SHAPED IUD ONCE EVERY 5 YEARS INSERTED INTO CERVIX
     Dates: start: 20081210
  3. MIRENA [Suspect]
     Indication: MENSTRUATION IRREGULAR
     Dosage: T-SHAPED IUD ONCE EVERY 5 YEARS INSERTED INTO CERVIX
     Dates: start: 20100901
  4. MIRENA [Suspect]
     Indication: PREGNANCY
     Dosage: T-SHAPED IUD ONCE EVERY 5 YEARS INSERTED INTO CERVIX
     Dates: start: 20100901

REACTIONS (2)
  - ALOPECIA [None]
  - DEVICE DISLOCATION [None]
